FAERS Safety Report 9264631 (Version 6)
Quarter: 2013Q4

REPORT INFORMATION
  Report Type: Spontaneous
  Country: US (occurrence: US)
  Receive Date: 20130501
  Receipt Date: 20131121
  Transmission Date: 20140711
  Serious: No
  Sender: FDA-Public Use
  Company Number: US-BIOGENIDEC-2013BI038408

PATIENT
  Age: 50 Year
  Sex: Female

DRUGS (1)
  1. TYSABRI [Suspect]
     Indication: MULTIPLE SCLEROSIS
     Route: 042
     Dates: start: 20121120

REACTIONS (11)
  - Urinary bladder atrophy [Not Recovered/Not Resolved]
  - Paraesthesia [Unknown]
  - Haemorrhoids [Not Recovered/Not Resolved]
  - Vein disorder [Recovered/Resolved]
  - Pain [Recovered/Resolved]
  - Bladder catheterisation [Unknown]
  - Pollakiuria [Not Recovered/Not Resolved]
  - Poor quality sleep [Unknown]
  - Stress [Not Recovered/Not Resolved]
  - Anxiety [Not Recovered/Not Resolved]
  - Dizziness [Recovered/Resolved]
